FAERS Safety Report 9563521 (Version 1)
Quarter: 2013Q3

REPORT INFORMATION
  Report Type: Spontaneous
  Country: US (occurrence: None)
  Receive Date: 20130926
  Receipt Date: 20130926
  Transmission Date: 20140515
  Serious: Yes (Hospitalization)
  Sender: FDA-Public Use
  Company Number: None

PATIENT
  Age: 67 Year
  Sex: Female
  Weight: 111.5 kg

DRUGS (4)
  1. CARBOPLATIN [Suspect]
  2. CISPLATIN [Suspect]
  3. PACLITAXEL (TAXOL) [Suspect]
  4. PEGFILGRASTIM (NEULASTA) [Suspect]

REACTIONS (3)
  - Oropharyngeal pain [None]
  - Body temperature increased [None]
  - Viral infection [None]
